FAERS Safety Report 4404438-8 (Version None)
Quarter: 2004Q3

REPORT INFORMATION
  Report Type: 
  Country: None (occurrence: None)
  Receive Date: 20040720
  Receipt Date: 20040714
  Transmission Date: 20050211
  Serious: Yes (Other)
  Sender: FDA-Public Use
  Company Number: 2002053682

PATIENT
  Age: 46 Year
  Sex: Female
  Weight: 58.514 kg

DRUGS (7)
  1. LOPID [Suspect]
     Indication: BLOOD CHOLESTEROL INCREASED
     Dosage: SEE IMAGE
     Dates: start: 20010601, end: 20010101
  2. CERIVASTATIN SODIUM (CERIVASTATIN SODIUM) [Suspect]
     Indication: BLOOD CHOLESTEROL INCREASED
     Dosage: 0.3 MG (1 IN 1 D)
     Dates: start: 20010601, end: 20010801
  3. DIAZEPAM [Concomitant]
  4. ATORVASTATIN CALCIUM [Concomitant]
  5. GENITO URINARY SISTEM AND SEX HORMONES (GENITO URINARY SYSTEM AND SEX [Concomitant]
  6. ESTRADIOL [Concomitant]
  7. AMOXICILLIN [Concomitant]

REACTIONS (20)
  - ABDOMINAL DISCOMFORT [None]
  - ACCIDENT [None]
  - ANAEMIA [None]
  - ARTHRALGIA [None]
  - CONTUSION [None]
  - DIZZINESS [None]
  - EAR PAIN [None]
  - EXCORIATION [None]
  - GLUCOSE TOLERANCE IMPAIRED [None]
  - JOINT SPRAIN [None]
  - MOOD ALTERED [None]
  - NIGHT SWEATS [None]
  - PYREXIA [None]
  - RENAL INJURY [None]
  - RHABDOMYOLYSIS [None]
  - URINARY INCONTINENCE [None]
  - URINARY SEDIMENT ABNORMAL [None]
  - VISION BLURRED [None]
  - VULVOVAGINAL DRYNESS [None]
  - WEIGHT INCREASED [None]
